FAERS Safety Report 24911833 (Version 2)
Quarter: 2025Q2

REPORT INFORMATION
  Report Type: Spontaneous
  Country: US (occurrence: US)
  Receive Date: 20250131
  Receipt Date: 20250512
  Transmission Date: 20250716
  Serious: Yes (Other)
  Sender: PFIZER
  Company Number: US-PFIZER INC-202500020512

PATIENT
  Age: 58 Year
  Sex: Male

DRUGS (8)
  1. INLYTA [Suspect]
     Active Substance: AXITINIB
     Dosage: 5 MG, 2X/DAY
     Route: 048
     Dates: start: 20241211, end: 202501
  2. INLYTA [Suspect]
     Active Substance: AXITINIB
     Dosage: 5 MG, 2X/DAY
     Route: 048
     Dates: start: 2025
  3. AMLODIPINE [Concomitant]
     Active Substance: AMLODIPINE BESYLATE
  4. BISOPROLOL FUMARATE\HYDROCHLOROTHIAZIDE [Concomitant]
     Active Substance: BISOPROLOL FUMARATE\HYDROCHLOROTHIAZIDE
  5. KEYTRUDA [Concomitant]
     Active Substance: PEMBROLIZUMAB
  6. LOPERAMIDE [Concomitant]
     Active Substance: LOPERAMIDE
  7. TELMISARTAN [Concomitant]
     Active Substance: TELMISARTAN
  8. VITAMIN D3 [Concomitant]
     Active Substance: CHOLECALCIFEROL

REACTIONS (4)
  - Hypertension [Recovering/Resolving]
  - Dry mouth [Recovering/Resolving]
  - Dysgeusia [Recovering/Resolving]
  - Feeling abnormal [Unknown]
